FAERS Safety Report 24799756 (Version 3)
Quarter: 2025Q1

REPORT INFORMATION
  Report Type: Report from Study
  Country: US (occurrence: US)
  Receive Date: 20250102
  Receipt Date: 20250325
  Transmission Date: 20250408
  Serious: Yes (Other)
  Sender: MALLINCKRODT
  Company Number: US-MALLINCKRODT-MNK202407720

PATIENT
  Sex: Female

DRUGS (2)
  1. CORTICOTROPIN [Suspect]
     Active Substance: CORTICOTROPIN
     Indication: Rheumatoid arthritis
  2. PREDNISONE [Concomitant]
     Active Substance: PREDNISONE

REACTIONS (7)
  - Diabetes mellitus [Unknown]
  - Foot deformity [Unknown]
  - Mobility decreased [Unknown]
  - Confusional state [Unknown]
  - Arthropathy [Unknown]
  - Hypoaesthesia [Unknown]
  - Drug ineffective [Unknown]
